FAERS Safety Report 18812757 (Version 2)
Quarter: 2021Q1

REPORT INFORMATION
  Report Type: Spontaneous
  Country: US (occurrence: US)
  Receive Date: 20210131
  Receipt Date: 20210325
  Transmission Date: 20210419
  Serious: No
  Sender: FDA-Public Use
  Company Number: US-JNJFOC-20210146587

PATIENT
  Sex: Female

DRUGS (1)
  1. WOMENS ROGAINE UNSCENTED [Suspect]
     Active Substance: MINOXIDIL
     Indication: ALOPECIA
     Dosage: HALF A CAP FULL EACH USE ONCE DAILY?LAST DOSE ADMINISTERED ON DEC/2020
     Route: 061
     Dates: start: 202008

REACTIONS (2)
  - Alopecia [Unknown]
  - Drug ineffective [Unknown]
